FAERS Safety Report 24312820 (Version 3)
Quarter: 2024Q4

REPORT INFORMATION
  Report Type: Spontaneous
  Country: FR (occurrence: FR)
  Receive Date: 20240912
  Receipt Date: 20241115
  Transmission Date: 20250115
  Serious: Yes (Hospitalization)
  Sender: ELI LILLY AND COMPANY
  Company Number: FR-ELI_LILLY_AND_COMPANY-FR202409003014

PATIENT
  Age: 54 Year
  Sex: Female

DRUGS (4)
  1. TALTZ [Suspect]
     Active Substance: IXEKIZUMAB
     Indication: Psoriatic arthropathy
     Dosage: 80 MG, MONTHLY (1/M)
     Route: 065
     Dates: start: 20240216
  2. TALTZ [Suspect]
     Active Substance: IXEKIZUMAB
     Indication: Psoriasis
     Dosage: 80 MG, WEEKLY (1/W)
     Route: 065
  3. IXPRIM [Concomitant]
     Active Substance: ACETAMINOPHEN\TRAMADOL HYDROCHLORIDE
     Indication: Gait disturbance
     Dosage: UNK
     Dates: start: 2023
  4. FLURBIPROFEN [Concomitant]
     Active Substance: FLURBIPROFEN
     Indication: Inflammation
     Dosage: UNK
     Dates: start: 2022

REACTIONS (9)
  - Chest pain [Recovered/Resolved]
  - Fatigue [Unknown]
  - Stress [Unknown]
  - Pain in jaw [Unknown]
  - Blood pressure decreased [Recovered/Resolved]
  - Heart rate decreased [Not Recovered/Not Resolved]
  - Malaise [Recovered/Resolved]
  - Nausea [Unknown]
  - Prescribed overdose [Unknown]

NARRATIVE: CASE EVENT DATE: 20240827
